FAERS Safety Report 9461222 (Version 1)
Quarter: 2013Q3

REPORT INFORMATION
  Report Type: Spontaneous
  Country: US (occurrence: None)
  Receive Date: 20130814
  Receipt Date: 20130814
  Transmission Date: 20140515
  Serious: Yes (Disabling, Other)
  Sender: FDA-Public Use
  Company Number: None

PATIENT
  Age: 57 Year
  Sex: Female
  Weight: 58.06 kg

DRUGS (10)
  1. SYNTHROID [Suspect]
     Indication: HYPOTHYROIDISM
     Dosage: 125MCG 5 1/DAY BY MOUTH
     Route: 048
     Dates: start: 20130707, end: 20130712
  2. TRIAMETERENE/HCTZ [Concomitant]
  3. ATORVASTATIN [Concomitant]
  4. DILTIAZEM [Concomitant]
  5. NIACIN [Concomitant]
  6. FISH OIL [Concomitant]
  7. CALCIUM [Concomitant]
  8. FIBER [Concomitant]
  9. VITAMIN E [Concomitant]
  10. DAILY VITAMIN (LIQUID) [Concomitant]

REACTIONS (4)
  - Fatigue [None]
  - Flatulence [None]
  - Diarrhoea [None]
  - Faeces discoloured [None]
